FAERS Safety Report 20040696 (Version 1)
Quarter: 2021Q4

REPORT INFORMATION
  Report Type: Spontaneous
  Country: US (occurrence: None)
  Receive Date: 20211105
  Receipt Date: 20211105
  Transmission Date: 20220303
  Serious: Yes (Hospitalization)
  Sender: FDA-Public Use
  Company Number: None

PATIENT
  Sex: Male

DRUGS (15)
  1. DROXIDOPA [Suspect]
     Active Substance: DROXIDOPA
     Indication: Orthostatic hypotension
     Dosage: FREQUENCY : 3 TIMES A DAY;?
     Route: 048
     Dates: start: 20211013
  2. CARBIDOPA\LEVODOPA [Concomitant]
     Active Substance: CARBIDOPA\LEVODOPA
  3. CEPHALEXIN [Concomitant]
     Active Substance: CEPHALEXIN
  4. DICYCLOMINE [Concomitant]
     Active Substance: DICYCLOMINE HYDROCHLORIDE
  5. DIGOXIN [Concomitant]
     Active Substance: DIGOXIN
  6. DOK [Concomitant]
     Active Substance: DOCUSATE SODIUM
  7. DONEPEZIL [Concomitant]
     Active Substance: DONEPEZIL
  8. FLUDROCORT [Concomitant]
  9. LEVOFLOXACIN [Concomitant]
     Active Substance: LEVOFLOXACIN
  10. LEVOTHYROXINE [Concomitant]
     Active Substance: LEVOTHYROXINE
  11. MIDODRINE [Concomitant]
     Active Substance: MIDODRINE
  12. MIRTAZAPINE [Concomitant]
     Active Substance: MIRTAZAPINE
  13. MYRBETRIQ [Concomitant]
     Active Substance: MIRABEGRON
  14. NITROFURANTOIN [Concomitant]
     Active Substance: NITROFURANTOIN
  15. NYSTATIN CRE [Concomitant]

REACTIONS (1)
  - Dizziness [None]
